FAERS Safety Report 7067929-X (Version None)
Quarter: 2010Q4

REPORT INFORMATION
  Report Type: 
  Country: None (occurrence: None)
  Receive Date: 20101004
  Receipt Date: 20100916
  Transmission Date: 20110411
  Serious: Yes (Hospitalization)
  Sender: FDA-Public Use
  Company Number: 2010PROUSA00058

PATIENT
  Age: 54 Year
  Sex: Male

DRUGS (3)
  1. PROVENGE [Suspect]
     Indication: PROSTATE CANCER METASTATIC
     Dosage: 250 ML, SINGLE, INTRAVENOUS
     Route: 042
     Dates: start: 20100729, end: 20100729
  2. PROVENGE [Suspect]
     Indication: PROSTATE CANCER METASTATIC
     Dosage: 250 ML, SINGLE, INTRAVENOUS
     Route: 042
     Dates: start: 20100827, end: 20100827
  3. PROVENGE [Suspect]

REACTIONS (5)
  - ADVERSE EVENT [None]
  - FATIGUE [None]
  - IMPAIRED WORK ABILITY [None]
  - NAUSEA [None]
  - PAIN IN EXTREMITY [None]
